FAERS Safety Report 10444595 (Version 3)
Quarter: 2014Q3

REPORT INFORMATION
  Report Type: Report from Study
  Country: DE (occurrence: DE)
  Receive Date: 20140910
  Receipt Date: 20140930
  Transmission Date: 20150326
  Serious: No
  Sender: FDA-Public Use
  Company Number: DE-SA-2014SA107299

PATIENT
  Age: 77 Year
  Sex: Male
  Weight: 81 kg

DRUGS (4)
  1. CABAZITAXEL [Suspect]
     Active Substance: CABAZITAXEL
     Indication: PROSTATE CANCER
     Dosage: DOSE:49.25?UNITS:UNSPECIFIED
     Route: 065
     Dates: start: 20130218, end: 20130218
  2. GRANOCYTE [Concomitant]
     Active Substance: LENOGRASTIM
  3. CABAZITAXEL [Suspect]
     Active Substance: CABAZITAXEL
     Indication: PROSTATE CANCER
     Dosage: DOSE : 49.25 UNITS : UNKNOWN
     Route: 065
     Dates: start: 20130328, end: 20130328
  4. DIPHENHYDRAMINE [Concomitant]
     Active Substance: DIPHENHYDRAMINE

REACTIONS (2)
  - Dermatitis exfoliative [Unknown]
  - Skin atrophy [Unknown]

NARRATIVE: CASE EVENT DATE: 20130419
